FAERS Safety Report 4264548-5 (Version None)
Quarter: 2004Q1

REPORT INFORMATION
  Report Type: 
  Country: None (occurrence: None)
  Receive Date: 20040102
  Receipt Date: 20031223
  Transmission Date: 20041129
  Serious: Yes (Hospitalization)
  Sender: FDA-Public Use
  Company Number: 2003-111295-NL

PATIENT
  Sex: Female
  Weight: 72.7 kg

DRUGS (2)
  1. NUVARING [Suspect]
     Indication: CONTRACEPTION
     Dosage: VAGINAL
     Route: 067
     Dates: start: 20030901
  2. MULTI-VITAMINS [Concomitant]

REACTIONS (4)
  - CONVULSION [None]
  - INSOMNIA [None]
  - MIGRAINE [None]
  - STRESS SYMPTOMS [None]
